FAERS Safety Report 11145282 (Version 2)
Quarter: 2015Q2

REPORT INFORMATION
  Report Type: Spontaneous
  Country: US (occurrence: US)
  Receive Date: 20150526
  Receipt Date: 20150610
  Transmission Date: 20150821
  Serious: Yes (Other)
  Sender: FDA-Public Use
  Company Number: US-PFIZER INC-2015171822

PATIENT
  Age: 2 Year
  Sex: Female
  Weight: 12 kg

DRUGS (3)
  1. VENTOLIN [Concomitant]
     Active Substance: ALBUTEROL SULFATE
  2. ADVIL [Suspect]
     Active Substance: IBUPROFEN
     Indication: PYREXIA
     Dosage: A THIRD OF THE PILL
     Route: 048
     Dates: start: 20150518
  3. CHILDRENS ADVIL [Concomitant]
     Active Substance: IBUPROFEN
     Indication: PYREXIA
     Dosage: UNK, EVERY 6 HOURS
     Route: 048

REACTIONS (5)
  - Choking [Recovered/Resolved]
  - Product label issue [Recovered/Resolved]
  - Drug administration error [Unknown]
  - Feeling abnormal [Recovered/Resolved]
  - Retching [Recovered/Resolved]

NARRATIVE: CASE EVENT DATE: 20150518
